FAERS Safety Report 12604845 (Version 1)
Quarter: 2016Q3

REPORT INFORMATION
  Report Type: Report from Study
  Country: US (occurrence: US)
  Receive Date: 20160728
  Receipt Date: 20160728
  Transmission Date: 20161109
  Serious: Yes (Other)
  Sender: FDA-Public Use
  Company Number: US-ABBVIE-16K-163-1681476-00

PATIENT
  Age: 55 Year
  Sex: Female

DRUGS (1)
  1. HUMIRA [Suspect]
     Active Substance: ADALIMUMAB
     Indication: PSORIASIS
     Route: 058

REACTIONS (9)
  - Arterial occlusive disease [Not Recovered/Not Resolved]
  - Gait disturbance [Unknown]
  - Injection site haemorrhage [Recovered/Resolved]
  - Pain in extremity [Not Recovered/Not Resolved]
  - Hypoaesthesia [Not Recovered/Not Resolved]
  - Dysgeusia [Recovered/Resolved]
  - Cardiovascular disorder [Not Recovered/Not Resolved]
  - Pruritus generalised [Recovered/Resolved]
  - Heavy exposure to ultraviolet light [Unknown]

NARRATIVE: CASE EVENT DATE: 201605
